FAERS Safety Report 19923548 (Version 1)
Quarter: 2021Q4

REPORT INFORMATION
  Report Type: Spontaneous
  Country: FR (occurrence: FR)
  Receive Date: 20211006
  Receipt Date: 20211006
  Transmission Date: 20220303
  Serious: Yes (Hospitalization, Disabling, Other)
  Sender: FDA-Public Use
  Company Number: FR-MYLANLABS-2021M1068900

PATIENT
  Age: 90 Year
  Sex: Male

DRUGS (1)
  1. LEVOFLOXACIN [Suspect]
     Active Substance: LEVOFLOXACIN
     Indication: Urinary tract infection
     Dosage: 500 MILLIGRAM, QD, 2 DF FOR 15 DAYS
     Dates: start: 20210811, end: 2021

REACTIONS (9)
  - Arthralgia [Not Recovered/Not Resolved]
  - Pain in extremity [Not Recovered/Not Resolved]
  - Gait disturbance [Not Recovered/Not Resolved]
  - Skin disorder [Not Recovered/Not Resolved]
  - Decreased appetite [Not Recovered/Not Resolved]
  - Weight decreased [Not Recovered/Not Resolved]
  - Dyspnoea [Not Recovered/Not Resolved]
  - Fatigue [Not Recovered/Not Resolved]
  - Paralysis [Unknown]

NARRATIVE: CASE EVENT DATE: 20210101
